FAERS Safety Report 6133328-8 (Version None)
Quarter: 2009Q1

REPORT INFORMATION
  Report Type: 
  Country: None (occurrence: None)
  Receive Date: 20090326
  Receipt Date: 20090319
  Transmission Date: 20090719
  Serious: Yes (Hospitalization, Other)
  Sender: FDA-Public Use
  Company Number: US-BAYER-200911579NA

PATIENT
  Age: 45 Year
  Sex: Female
  Weight: 71 kg

DRUGS (2)
  1. MIRENA [Suspect]
     Indication: CONTRACEPTION
     Dosage: CONTINUOUS
     Route: 015
     Dates: start: 20070829
  2. ADVAIR HFA [Concomitant]

REACTIONS (2)
  - ARTERIOSPASM CORONARY [None]
  - MYOCARDIAL INFARCTION [None]
